FAERS Safety Report 7069757-8 (Version None)
Quarter: 2010Q4

REPORT INFORMATION
  Report Type: 
  Country: None (occurrence: None)
  Receive Date: 20101028
  Receipt Date: 20100601
  Transmission Date: 20110411
  Serious: No
  Sender: FDA-Public Use
  Company Number: US-WYE-H15465910

PATIENT
  Sex: Female
  Weight: 124.4 kg

DRUGS (4)
  1. PROTONIX [Suspect]
     Indication: GASTROOESOPHAGEAL REFLUX DISEASE
     Route: 048
     Dates: start: 20100405, end: 20100501
  2. GEODON [Concomitant]
  3. EFFEXOR XR [Concomitant]
  4. TRILEPTAL [Concomitant]

REACTIONS (2)
  - PRODUCT QUALITY ISSUE [None]
  - TONSILLAR HYPERTROPHY [None]
